FAERS Safety Report 7751862-1 (Version None)
Quarter: 2011Q3

REPORT INFORMATION
  Report Type: 
  Country: None (occurrence: None)
  Receive Date: 20110914
  Receipt Date: 20110914
  Transmission Date: 20111222
  Serious: No
  Sender: FDA-Public Use
  Company Number: None

PATIENT
  Age: 81 Year
  Sex: Male
  Weight: 67.7 kg

DRUGS (1)
  1. CEFTAZIDIME [Suspect]
     Indication: UPPER RESPIRATORY TRACT INFECTION
     Dosage: 1 GM BID IV
     Route: 042
     Dates: start: 20110719, end: 20110721

REACTIONS (1)
  - URTICARIA [None]
